FAERS Safety Report 5852219-0 (Version None)
Quarter: 2008Q3

REPORT INFORMATION
  Report Type: 
  Country: None (occurrence: None)
  Receive Date: 20080821
  Receipt Date: 20080818
  Transmission Date: 20090109
  Serious: Yes (Hospitalization)
  Sender: FDA-Public Use
  Company Number: NL-ASTRAZENECA-2008AC02216

PATIENT
  Age: 24764 Day
  Sex: Female
  Weight: 75 kg

DRUGS (5)
  1. ARIMIDEX [Suspect]
     Indication: BREAST CANCER
     Route: 048
     Dates: start: 20061109
  2. ACTONEL [Concomitant]
     Indication: OSTEOPOROSIS
     Route: 048
     Dates: start: 20060101
  3. HCT/AMYLORIDE [Concomitant]
     Indication: HYPERTENSION
     Route: 048
  4. OMEPRAZOLE [Concomitant]
     Route: 048
  5. CA / VIT D3 [Concomitant]
     Indication: OSTEOPOROSIS
     Route: 048
     Dates: start: 20061110

REACTIONS (1)
  - FOOT DEFORMITY [None]
